FAERS Safety Report 6541294-6 (Version None)
Quarter: 2010Q1

REPORT INFORMATION
  Report Type: 
  Country: None (occurrence: None)
  Receive Date: 20100118
  Receipt Date: 20100113
  Transmission Date: 20100710
  Serious: Yes (Hospitalization, Other)
  Sender: FDA-Public Use
  Company Number: US-ABBOTT-10P-163-0619003-00

PATIENT
  Sex: Female
  Weight: 101.24 kg

DRUGS (18)
  1. HUMIRA [Suspect]
     Indication: RHEUMATOID ARTHRITIS
     Route: 058
     Dates: start: 20090712, end: 20091126
  2. VITAMIN TAB [Concomitant]
     Indication: DRUG USE FOR UNKNOWN INDICATION
     Route: 048
     Dates: start: 20090712, end: 20091126
  3. VITAMIN D [Concomitant]
     Indication: DRUG USE FOR UNKNOWN INDICATION
     Route: 048
     Dates: start: 20090715, end: 20090815
  4. VITAMIN D [Concomitant]
     Route: 048
     Dates: start: 20090815, end: 20091001
  5. COFFEE [Concomitant]
     Indication: DRUG USE FOR UNKNOWN INDICATION
     Route: 048
     Dates: start: 20090712, end: 20091126
  6. TEA [Concomitant]
     Indication: DRUG USE FOR UNKNOWN INDICATION
     Route: 048
     Dates: start: 20090712, end: 20091001
  7. TEA [Concomitant]
     Dosage: 1 SERVING
     Route: 048
     Dates: start: 20091001, end: 20091126
  8. CAFFEINE [Concomitant]
     Indication: DRUG USE FOR UNKNOWN INDICATION
     Route: 048
     Dates: start: 20090712, end: 20091126
  9. LEVOTHYROXINE SODIUM [Concomitant]
     Indication: HYPOTHYROIDISM
     Route: 048
     Dates: start: 20090715, end: 20091126
  10. ROLAIDS [Concomitant]
     Indication: DYSPEPSIA
     Route: 048
     Dates: start: 20090712, end: 20090917
  11. ANTIBIOTIC [Concomitant]
     Indication: PROPHYLAXIS
     Route: 042
     Dates: start: 20091118, end: 20091118
  12. AMPICILLIN [Concomitant]
     Indication: INFECTION PROPHYLAXIS
     Route: 048
     Dates: start: 20091120, end: 20091124
  13. _THROMYCIN [Concomitant]
     Indication: PROPHYLAXIS
     Route: 048
     Dates: start: 20091120, end: 20091124
  14. AMOXICILLIN [Concomitant]
     Indication: UTERINE INFECTION
     Route: 042
     Dates: start: 20091125, end: 20091126
  15. PITOCIN [Concomitant]
     Indication: UTERINE CONTRACTIONS ABNORMAL
     Route: 042
     Dates: start: 20091126, end: 20091126
  16. MORPHINE [Concomitant]
     Indication: PAIN
     Route: 042
     Dates: start: 20091126, end: 20091126
  17. FLU VACCINE [Concomitant]
     Indication: H1N1 INFLUENZA
     Dosage: 1 SHOT
     Route: 050
     Dates: start: 20091103, end: 20091103
  18. ANTIBIOTIC [Concomitant]
     Indication: UTERINE INFECTION
     Route: 042
     Dates: start: 20091125, end: 20091126

REACTIONS (4)
  - ABORTION SPONTANEOUS [None]
  - GESTATIONAL DIABETES [None]
  - PREMATURE RUPTURE OF MEMBRANES [None]
  - UTERINE INFECTION [None]
